FAERS Safety Report 22945717 (Version 6)
Quarter: 2024Q1

REPORT INFORMATION
  Report Type: Spontaneous
  Country: US (occurrence: US)
  Receive Date: 20230914
  Receipt Date: 20240215
  Transmission Date: 20240410
  Serious: Yes (Other)
  Sender: FDA-Public Use
  Company Number: US-BRISTOL-MYERS SQUIBB COMPANY-2023-129624

PATIENT
  Age: 78 Year
  Sex: Male

DRUGS (2)
  1. POMALYST [Suspect]
     Active Substance: POMALIDOMIDE
     Indication: Plasma cell myeloma
     Dosage: TAKE 1 CAPSULE BY MOUTH DAILY ON DAYS 1-14 FOLLOWED BY 7 DAYS OFF IN A 21 DAY CYCLE.
     Route: 048
     Dates: start: 20230316
  2. POMALYST [Suspect]
     Active Substance: POMALIDOMIDE
     Dosage: TAKE 1 CAPSULE BY MOUTH DAILY ON DAYS 1-21 THEN 7 DAYS OFF FOR EACH 28 DAY CYCLE
     Route: 048
     Dates: start: 20230602

REACTIONS (6)
  - Diarrhoea [Recovered/Resolved]
  - Constipation [Not Recovered/Not Resolved]
  - Oedema peripheral [Not Recovered/Not Resolved]
  - Product dose omission in error [Unknown]
  - Accidental overdose [Unknown]
  - Off label use [Unknown]
